FAERS Safety Report 10236443 (Version 2)
Quarter: 2014Q3

REPORT INFORMATION
  Report Type: Spontaneous
  Country: ES (occurrence: ES)
  Receive Date: 20140613
  Receipt Date: 20140916
  Transmission Date: 20150326
  Serious: Yes (Death, Hospitalization)
  Sender: FDA-Public Use
  Company Number: ES-CELGENEUS-144-POMAL-14060105

PATIENT
  Age: 66 Year
  Sex: Female

DRUGS (1)
  1. IMNOVID [Suspect]
     Active Substance: POMALIDOMIDE
     Indication: PLASMA CELL MYELOMA
     Route: 048
     Dates: start: 20140320

REACTIONS (2)
  - Pulmonary sepsis [Fatal]
  - Plasma cell leukaemia [Fatal]

NARRATIVE: CASE EVENT DATE: 20140405
